FAERS Safety Report 6310920-9 (Version None)
Quarter: 2009Q3

REPORT INFORMATION
  Report Type: 
  Country: None (occurrence: None)
  Receive Date: 20090812
  Receipt Date: 20090313
  Transmission Date: 20100115
  Serious: Yes (Other)
  Sender: FDA-Public Use
  Company Number: 2009AP001193

PATIENT
  Age: 54 Year
  Sex: Female

DRUGS (2)
  1. RAMIPRIL [Suspect]
  2. BENDROFLUMETHIAZIDE (BENDROFLUMETHIAZIDE) [Concomitant]

REACTIONS (6)
  - CONDITION AGGRAVATED [None]
  - CUTANEOUS LUPUS ERYTHEMATOSUS [None]
  - DRUG ERUPTION [None]
  - GRANULOMA [None]
  - LICHENOID KERATOSIS [None]
  - STOMATITIS [None]
